FAERS Safety Report 9435397 (Version 1)
Quarter: 2013Q3

REPORT INFORMATION
  Report Type: Spontaneous
  Country: DE (occurrence: DE)
  Receive Date: 20130801
  Receipt Date: 20130801
  Transmission Date: 20140515
  Serious: Yes (Other)
  Sender: FDA-Public Use
  Company Number: DE-JNJFOC-20130715751

PATIENT
  Age: 59 Year
  Sex: Male

DRUGS (2)
  1. REMICADE [Suspect]
     Indication: PUSTULAR PSORIASIS
     Route: 042
  2. METHOTREXAT [Suspect]
     Indication: PUSTULAR PSORIASIS
     Route: 065

REACTIONS (3)
  - Lymphocytosis [Not Recovered/Not Resolved]
  - Pneumonia [Recovering/Resolving]
  - Anaemia [Recovering/Resolving]
